FAERS Safety Report 18757821 (Version 7)
Quarter: 2021Q4

REPORT INFORMATION
  Report Type: Report from Study
  Country: BR (occurrence: BR)
  Receive Date: 20210119
  Receipt Date: 20211228
  Transmission Date: 20220303
  Serious: Yes (Life-Threatening, Hospitalization, Other)
  Sender: FDA-Public Use
  Company Number: BR-002147023-NVSC2021BR006583

PATIENT

DRUGS (5)
  1. RUXOLITINIB [Suspect]
     Active Substance: RUXOLITINIB
     Indication: Myelofibrosis
     Dosage: 1 DF, QD
     Route: 048
     Dates: start: 201910
  2. RUXOLITINIB [Suspect]
     Active Substance: RUXOLITINIB
     Dosage: (60 TABLETS)
     Route: 065
     Dates: start: 20191103
  3. RUXOLITINIB [Suspect]
     Active Substance: RUXOLITINIB
     Dosage: (1 TABLET IN ALTERNATE DAYS, SOMETIMES BREAKS)
     Route: 065
     Dates: start: 201910
  4. RUXOLITINIB [Suspect]
     Active Substance: RUXOLITINIB
     Dosage: (2 TABLETS BY DAY, BUT ALTERNATING DAYS)
     Route: 065
  5. RUXOLITINIB [Suspect]
     Active Substance: RUXOLITINIB
     Dosage: UNK
     Route: 065

REACTIONS (32)
  - Urinary retention [Unknown]
  - Pancreatitis acute [Unknown]
  - Anaemia [Unknown]
  - Diarrhoea haemorrhagic [Unknown]
  - Burning sensation [Unknown]
  - Angular cheilitis [Unknown]
  - Wrong technique in product usage process [Unknown]
  - Gastrooesophageal reflux disease [Unknown]
  - Renal atrophy [Unknown]
  - Movement disorder [Unknown]
  - Headache [Unknown]
  - Herpes virus infection [Recovered/Resolved]
  - Gait disturbance [Unknown]
  - Weight decreased [Unknown]
  - Nausea [Not Recovered/Not Resolved]
  - Drug ineffective [Unknown]
  - Anorectal disorder [Unknown]
  - Oral disorder [Unknown]
  - Pancreatitis [Unknown]
  - Near death experience [Unknown]
  - Muscle rigidity [Unknown]
  - Rhinorrhoea [Unknown]
  - Illness [Unknown]
  - Somnolence [Unknown]
  - Splenomegaly [Unknown]
  - Musculoskeletal stiffness [Unknown]
  - Suspected counterfeit product [Unknown]
  - Fatigue [Unknown]
  - Expired product administered [Unknown]
  - Inappropriate schedule of product administration [Unknown]
  - Vomiting [Unknown]
  - Malaise [Unknown]

NARRATIVE: CASE EVENT DATE: 20191103
